FAERS Safety Report 7118200-9 (Version None)
Quarter: 2010Q4

REPORT INFORMATION
  Report Type: 
  Country: None (occurrence: None)
  Receive Date: 20101123
  Receipt Date: 20100607
  Transmission Date: 20110411
  Serious: No
  Sender: FDA-Public Use
  Company Number: US-MYLANLABS-2010S1010277

PATIENT
  Sex: Female

DRUGS (4)
  1. DOXAZOSIN TABLETS [Suspect]
     Indication: BLOOD PRESSURE INCREASED
     Route: 048
     Dates: start: 20100604, end: 20100601
  2. LEVOTHYROXINE SODIUM [Concomitant]
  3. METOPROLOL TARTRATE [Concomitant]
  4. PAXIL [Concomitant]

REACTIONS (4)
  - DISTURBANCE IN ATTENTION [None]
  - MIDDLE EAR EFFUSION [None]
  - NAUSEA [None]
  - PALPITATIONS [None]
